FAERS Safety Report 9298603 (Version 7)
Quarter: 2013Q3

REPORT INFORMATION
  Report Type: Spontaneous
  Country: US (occurrence: US)
  Receive Date: 20130520
  Receipt Date: 20130912
  Transmission Date: 20140515
  Serious: No
  Sender: FDA-Public Use
  Company Number: US-PFIZER INC-2013152544

PATIENT
  Age: 68 Year
  Sex: Female
  Weight: 70.3 kg

DRUGS (6)
  1. SUTENT [Suspect]
     Indication: RENAL CANCER METASTATIC
     Dosage: 50 MG, 1X/DAY, 4 WEEKS ON/2 WEEKS OFF
     Route: 048
     Dates: start: 20130506, end: 20130605
  2. SUTENT [Suspect]
     Dosage: 25 MG, CYCLIC (25MG/D X 28D Q 42D)
     Dates: start: 20130606
  3. PROZAC [Concomitant]
     Dosage: 40 MG, DAILY
     Route: 048
     Dates: start: 2012
  4. VITAMIN B12 [Concomitant]
     Dosage: UNK
  5. VITAMIN D [Concomitant]
     Dosage: 2000 IU, 1X/DAY
     Route: 048
  6. IMODIUM A-D [Concomitant]
     Dosage: AS NEEDED

REACTIONS (22)
  - Insomnia [Unknown]
  - Chromaturia [Recovered/Resolved]
  - Diarrhoea [Recovered/Resolved]
  - Fatigue [Unknown]
  - Decreased appetite [Unknown]
  - Weight decreased [Unknown]
  - Faeces discoloured [Recovered/Resolved]
  - Rhinorrhoea [Recovered/Resolved]
  - Dysphagia [Recovering/Resolving]
  - Retching [Recovering/Resolving]
  - Stomatitis [Recovering/Resolving]
  - Dysgeusia [Not Recovered/Not Resolved]
  - Dyspnoea [Not Recovered/Not Resolved]
  - Dehydration [Recovered/Resolved]
  - Nausea [Recovered/Resolved]
  - Stomatitis [Recovered/Resolved]
  - Dry skin [Recovered/Resolved]
  - Petechiae [Unknown]
  - Hair colour changes [Unknown]
  - Eyelash discolouration [Unknown]
  - Alopecia [Unknown]
  - Hair growth abnormal [Unknown]
